FAERS Safety Report 21783738 (Version 1)
Quarter: 2022Q4

REPORT INFORMATION
  Report Type: Spontaneous
  Country: US (occurrence: US)
  Receive Date: 20221227
  Receipt Date: 20221227
  Transmission Date: 20230113
  Serious: No
  Sender: FDA-Public Use
  Company Number: US-PFIZER INC-202201392031

PATIENT
  Age: 67 Year
  Sex: Female
  Weight: 113.4 kg

DRUGS (3)
  1. IBRANCE [Suspect]
     Active Substance: PALBOCICLIB
     Dosage: 125 MG
     Dates: start: 201805
  2. IBRANCE [Suspect]
     Active Substance: PALBOCICLIB
     Dosage: 100 MG
  3. IBRANCE [Suspect]
     Active Substance: PALBOCICLIB
     Dosage: 75 MG, THREE WEEKS ON ONE WEEK OFF, ONCE A DAY FOR THREE WEEKS
     Route: 048

REACTIONS (2)
  - Neoplasm progression [Unknown]
  - Alopecia [Unknown]

NARRATIVE: CASE EVENT DATE: 20221201
